FAERS Safety Report 8092062-8 (Version None)
Quarter: 2012Q1

REPORT INFORMATION
  Report Type: 
  Country: None (occurrence: None)
  Receive Date: 20120129
  Receipt Date: 20111109
  Transmission Date: 20120608
  Serious: No
  Sender: FDA-Public Use
  Company Number: US-ABBOTT-11P-163-0872913-00

PATIENT
  Sex: Male
  Weight: 79.45 kg

DRUGS (4)
  1. PREDNISONE TAB [Concomitant]
     Indication: RHEUMATOID ARTHRITIS
  2. METHOTREXATE [Concomitant]
     Indication: RHEUMATOID ARTHRITIS
     Route: 048
  3. HUMIRA [Suspect]
     Indication: RHEUMATOID ARTHRITIS
     Route: 058
     Dates: start: 20080101, end: 20111011
  4. PLAQUENIL [Concomitant]
     Indication: RHEUMATOID ARTHRITIS

REACTIONS (6)
  - RHEUMATOID ARTHRITIS [None]
  - OEDEMA PERIPHERAL [None]
  - ARTHRALGIA [None]
  - PAIN IN EXTREMITY [None]
  - RASH [None]
  - HERPES ZOSTER [None]
